FAERS Safety Report 4378358-1 (Version None)
Quarter: 2004Q2

REPORT INFORMATION
  Report Type: 
  Country: None (occurrence: None)
  Receive Date: 20040609
  Receipt Date: 20040601
  Transmission Date: 20050107
  Serious: Yes (Hospitalization)
  Sender: FDA-Public Use
  Company Number: 2004037123

PATIENT
  Age: 56 Year
  Sex: Female

DRUGS (4)
  1. VISINE-A [Suspect]
     Indication: EYE PRURITUS
     Dosage: UNSPECIFIED AMOUNT TWICE, OPHTHALMIC (SEE IMAGE)
     Dates: start: 20040501, end: 20040501
  2. DYAZIDE [Concomitant]
  3. BENAZEPRIL HCL [Concomitant]
  4. LEVOTHYROXINE SODIUM [Concomitant]

REACTIONS (9)
  - BACTERIAL INFECTION [None]
  - CELLULITIS [None]
  - ERYTHEMA [None]
  - EYE PAIN [None]
  - EYE REDNESS [None]
  - EYE SWELLING [None]
  - LOCALISED INFECTION [None]
  - OEDEMA PERIPHERAL [None]
  - PYREXIA [None]
